FAERS Safety Report 4763984-8 (Version None)
Quarter: 2005Q3

REPORT INFORMATION
  Report Type: 
  Country: None (occurrence: None)
  Receive Date: 20050906
  Receipt Date: 20050823
  Transmission Date: 20060218
  Serious: Yes (Hospitalization)
  Sender: FDA-Public Use
  Company Number: 2005119097

PATIENT
  Sex: Female
  Weight: 63.5036 kg

DRUGS (1)
  1. DETROL LA [Suspect]
     Indication: POLLAKIURIA
     Dosage: 4 MG (4 MG, 1 IN 1 D
     Dates: start: 20010101, end: 20040101

REACTIONS (7)
  - CONDITION AGGRAVATED [None]
  - CYSTITIS [None]
  - DRUG EXPOSURE DURING PREGNANCY [None]
  - INFLAMMATION [None]
  - PREGNANCY [None]
  - RENAL DISORDER IN PREGNANCY [None]
  - URETERIC DILATATION [None]
